FAERS Safety Report 16151097 (Version 1)
Quarter: 2019Q2

REPORT INFORMATION
  Report Type: Spontaneous
  Country: FR (occurrence: FR)
  Receive Date: 20190403
  Receipt Date: 20190403
  Transmission Date: 20190711
  Serious: Yes (Hospitalization)
  Sender: FDA-Public Use
  Company Number: FR-TEVA-2019-FR-1031919

PATIENT
  Age: 15 Year
  Sex: Female

DRUGS (1)
  1. CLOZAPINE. [Suspect]
     Active Substance: CLOZAPINE
     Indication: SCHIZOPHRENIA
     Dosage: 50 MILLIGRAM DAILY;
     Route: 048
     Dates: start: 2017, end: 20190219

REACTIONS (5)
  - Social avoidant behaviour [Recovering/Resolving]
  - Vomiting [Recovered/Resolved]
  - Headache [Recovered/Resolved]
  - Asthenia [Recovering/Resolving]
  - Withdrawal syndrome [Recovered/Resolved]

NARRATIVE: CASE EVENT DATE: 20190220
